FAERS Safety Report 5631757-X (Version None)
Quarter: 2008Q1

REPORT INFORMATION
  Report Type: 
  Country: None (occurrence: None)
  Receive Date: 20080220
  Receipt Date: 20080214
  Transmission Date: 20080703
  Serious: No
  Sender: FDA-Public Use
  Company Number: US-ASTRAZENECA-2007UW27037

PATIENT
  Age: 12 Year
  Sex: Male
  Weight: 57.2 kg

DRUGS (2)
  1. ARIMIDEX [Suspect]
     Indication: ADRENOGENITAL SYNDROME
     Route: 048
     Dates: start: 20070821, end: 20071101
  2. PREDNISONE TAB [Concomitant]

REACTIONS (4)
  - FALL [None]
  - LOSS OF CONSCIOUSNESS [None]
  - RASH [None]
  - SYNCOPE [None]
